FAERS Safety Report 7493999-0 (Version None)
Quarter: 2011Q2

REPORT INFORMATION
  Report Type: 
  Country: None (occurrence: None)
  Receive Date: 20110520
  Receipt Date: 20110511
  Transmission Date: 20111010
  Serious: Yes (Other)
  Sender: FDA-Public Use
  Company Number: US-ASTRAZENECA-2011SE28781

PATIENT
  Sex: Female

DRUGS (14)
  1. LANTUS [Concomitant]
     Dosage: 10 ML VIAL 18 UNITS 2 BY 4 DAY (AM AND PM)
  2. TOPIRAMATE [Concomitant]
  3. SIMVASTATIN [Concomitant]
  4. DIOVAN [Concomitant]
  5. LEVOTHYROXINE SODIUM [Concomitant]
  6. SERTRALINE HYDROCHLORIDE [Concomitant]
  7. ALPRAZOLAM [Concomitant]
  8. XALATAN [Concomitant]
     Dosage: 0.005% 1 DROP IN EACH EYE EVERY EVENING (BED TIME)
  9. NORTRIPTYLINE HYDROCHLORIDE [Concomitant]
  10. MELOXICAM [Concomitant]
  11. GABAPENTIN [Concomitant]
  12. NEXIUM [Suspect]
     Route: 048
  13. NOVOLOG [Concomitant]
     Dosage: 10 ML VIAL SLIDING SCALE DURING THE DAY
  14. TIMOLOL MALEATE [Concomitant]
     Dosage: 0.5 % SOL 1 DROP IN EACH EYE EVERY MORNING

REACTIONS (9)
  - COMPLEX REGIONAL PAIN SYNDROME [None]
  - TRANSIENT ISCHAEMIC ATTACK [None]
  - GASTROOESOPHAGEAL REFLUX DISEASE [None]
  - DIABETIC NEUROPATHY [None]
  - GLAUCOMA [None]
  - DRUG DOSE OMISSION [None]
  - HYPOTHYROIDISM [None]
  - BARRETT'S OESOPHAGUS [None]
  - DIABETES MELLITUS [None]
